FAERS Safety Report 8716932 (Version 2)
Quarter: 2012Q4

REPORT INFORMATION
  Report Type: 
  Country: FR (occurrence: FR)
  Receive Date: 20120810
  Receipt Date: 20120914
  Transmission Date: 20130627
  Serious: Yes (Hospitalization)
  Sender: FDA-Public Use
  Company Number: FR-JNJFOC-20120801765

PATIENT
  Age: 37 Year
  Sex: Male

DRUGS (5)
  1. REMICADE [Suspect]
     Indication: CROHN^S DISEASE
     Route: 042
     Dates: start: 201005, end: 201111
  2. REMICADE [Suspect]
     Indication: CROHN^S DISEASE
     Route: 042
     Dates: start: 2009
  3. DIAMOX [Concomitant]
     Route: 065
  4. QUESTRAN [Concomitant]
     Route: 065
  5. PENTASA [Concomitant]
     Route: 065

REACTIONS (2)
  - Headache [Unknown]
  - Benign intracranial hypertension [Unknown]
